FAERS Safety Report 6888361-5 (Version None)
Quarter: 2010Q3

REPORT INFORMATION
  Report Type: 
  Country: None (occurrence: None)
  Receive Date: 20100730
  Receipt Date: 20100720
  Transmission Date: 20110219
  Serious: Yes (Death, Hospitalization)
  Sender: FDA-Public Use
  Company Number: GB-GENZYME-CLOF-1000930

PATIENT
  Sex: Female

DRUGS (12)
  1. EVOLTRA [Suspect]
     Indication: ACUTE MYELOID LEUKAEMIA
     Dosage: UNK
     Route: 042
     Dates: start: 20080601
  2. EVOLTRA [Suspect]
     Dosage: UNK
     Route: 042
  3. EVOLTRA [Suspect]
     Dosage: UNK
     Route: 042
     Dates: end: 20080816
  4. DAUNORUBICIN HCL [Suspect]
     Indication: ACUTE MYELOID LEUKAEMIA
     Dosage: UNK
     Route: 042
     Dates: start: 20080601
  5. DAUNORUBICIN HCL [Suspect]
     Dosage: UNK
     Route: 042
  6. DAUNORUBICIN HCL [Suspect]
     Dosage: UNK
     Route: 042
     Dates: end: 20080816
  7. ARA-C [Suspect]
     Indication: ACUTE MYELOID LEUKAEMIA
     Dosage: UNK
     Route: 042
     Dates: start: 20080601
  8. ARA-C [Suspect]
     Dosage: UNK
     Route: 042
  9. ARA-C [Suspect]
     Dosage: UNK
     Route: 042
     Dates: end: 20080816
  10. MYLOTARG [Suspect]
     Indication: ACUTE MYELOID LEUKAEMIA
     Dosage: UNK
     Route: 042
     Dates: start: 20080601
  11. MYLOTARG [Suspect]
     Route: 042
  12. MYLOTARG [Suspect]
     Dosage: UNK
     Route: 042
     Dates: end: 20080816

REACTIONS (2)
  - ACUTE MYELOID LEUKAEMIA RECURRENT [None]
  - PNEUMONIA [None]
